FAERS Safety Report 6218697-2 (Version None)
Quarter: 2009Q2

REPORT INFORMATION
  Report Type: 
  Country: None (occurrence: None)
  Receive Date: 20090608
  Receipt Date: 20090527
  Transmission Date: 20091009
  Serious: Yes (Other)
  Sender: FDA-Public Use
  Company Number: US-PFIZER INC-2009221048

PATIENT
  Sex: Female

DRUGS (1)
  1. TOVIAZ [Suspect]
     Indication: HYPERTONIC BLADDER
     Route: 048

REACTIONS (5)
  - DIABETES MELLITUS [None]
  - DIZZINESS [None]
  - GASTRIC BYPASS [None]
  - HYPOGLYCAEMIA [None]
  - MALAISE [None]
